FAERS Safety Report 4881181-2 (Version None)
Quarter: 2006Q1

REPORT INFORMATION
  Report Type: 
  Country: None (occurrence: None)
  Receive Date: 20060111
  Receipt Date: 20060111
  Transmission Date: 20060701
  Serious: Yes (Other)
  Sender: FDA-Public Use
  Company Number: None

PATIENT
  Age: 36 Year
  Sex: Female
  Weight: 56.6996 kg

DRUGS (1)
  1. ZICAM  UNKNOWN -OVER THE COUNTER- GEL TECH [Suspect]
     Indication: NASOPHARYNGITIS
     Dosage: 4 SQUIRTS EACH  NASAL PASSAGE
     Route: 045
     Dates: start: 20051217, end: 20051217

REACTIONS (4)
  - APPLICATION SITE PAIN [None]
  - HYPOSMIA [None]
  - INSOMNIA [None]
  - NASAL DISCOMFORT [None]
